FAERS Safety Report 10641673 (Version 4)
Quarter: 2015Q4

REPORT INFORMATION
  Report Type: Spontaneous
  Country: US (occurrence: US)
  Receive Date: 20141209
  Receipt Date: 20151002
  Transmission Date: 20160304
  Serious: Yes (Death)
  Sender: FDA-Public Use
  Company Number: US-LUNDBECK-DKLU1106355

PATIENT
  Age: 76 Year
  Sex: Male

DRUGS (5)
  1. NORTHERA [Suspect]
     Active Substance: DROXIDOPA
     Indication: ORTHOSTATIC HYPOTENSION
     Route: 048
     Dates: end: 20141123
  2. FLORINEF ACETATE [Concomitant]
     Active Substance: FLUDROCORTISONE ACETATE
     Indication: ORTHOSTATIC HYPOTENSION
     Route: 065
  3. FLORINEF ACETATE [Concomitant]
     Active Substance: FLUDROCORTISONE ACETATE
     Indication: SYNCOPE
  4. MIDODRINE [Concomitant]
     Active Substance: MIDODRINE
     Indication: ORTHOSTATIC HYPOTENSION
     Route: 065
  5. MIDODRINE [Concomitant]
     Active Substance: MIDODRINE
     Indication: SYNCOPE

REACTIONS (2)
  - Cardio-respiratory arrest [Fatal]
  - Multiple system atrophy [Fatal]

NARRATIVE: CASE EVENT DATE: 20141123
